FAERS Safety Report 18503669 (Version 1)
Quarter: 2020Q4

REPORT INFORMATION
  Report Type: Spontaneous
  Country: NL (occurrence: NL)
  Receive Date: 20201113
  Receipt Date: 20201113
  Transmission Date: 20210114
  Serious: Yes (Life-Threatening)
  Sender: FDA-Public Use
  Company Number: NL-MYLANLABS-2020M1094704

PATIENT
  Age: 57 Year
  Sex: Female
  Weight: 79.1 kg

DRUGS (9)
  1. TOPIRAMATE. [Suspect]
     Active Substance: TOPIRAMATE
     Indication: BIPOLAR DISORDER
     Dosage: 300 MILLIGRAM, BID (2X PER DAY 3 TABLET)
     Dates: start: 1900
  2. CLONIDINE. [Interacting]
     Active Substance: CLONIDINE
     Indication: HYPERHIDROSIS
     Dosage: 0.05 MILLIGRAM, BID (2 DD 2 TABLET)
     Dates: start: 1900, end: 20200813
  3. TOPIRAMATE. [Interacting]
     Active Substance: TOPIRAMATE
     Indication: SCHIZOAFFECTIVE DISORDER
  4. SALBUTAMOLUM [Concomitant]
     Active Substance: ALBUTEROL
     Dosage: UNK AEROSOL, 100 ?G/DOSIS (MICROGRAM PER DOSIS)
  5. FERROFUMARAAT [Concomitant]
     Active Substance: FERROUS FUMARATE
     Dosage: UNK TABLET, 200 MG (MILLIGRAM)
  6. OMEPRAZOL                          /00661201/ [Concomitant]
     Active Substance: OMEPRAZOLE
     Dosage: UNK GASTRO-RESISTANT CAPSULE, 20 MG (MILLIGRAM)
  7. BUPRENORFINA                       /00444002/ [Concomitant]
     Dosage: UNK PATCH, 15 ?G (MICROGRAM) PER HOUR
  8. QUETIAPINE. [Concomitant]
     Active Substance: QUETIAPINE
     Dosage: FILM-COATED TABLET, 200 MG (MILLIGRAM)
  9. TEMAZEPAM. [Concomitant]
     Active Substance: TEMAZEPAM
     Dosage: UNK CAPSULE, 10 MG (MILLIGRAM)

REACTIONS (2)
  - Hyperthermia [Recovering/Resolving]
  - Potentiating drug interaction [Recovering/Resolving]

NARRATIVE: CASE EVENT DATE: 20200813
